FAERS Safety Report 4493596-5 (Version None)
Quarter: 2004Q4

REPORT INFORMATION
  Report Type: 
  Country: None (occurrence: None)
  Receive Date: 20041103
  Receipt Date: 20041103
  Transmission Date: 20050328
  Serious: Yes (Disabling, Other)
  Sender: FDA-Public Use
  Company Number: None

PATIENT
  Sex: Male
  Weight: 63.5036 kg

DRUGS (1)
  1. LINDANE [Suspect]
     Indication: LICE INFESTATION
     Dosage: 2 TWICE A DAY ALONGE WITH BATHS
     Dates: start: 20030101, end: 20041010

REACTIONS (1)
  - LICE INFESTATION [None]
